FAERS Safety Report 7924743 (Version 3)
Quarter: 2016Q2

REPORT INFORMATION
  Report Type: Report from Study
  Country: LB (occurrence: LB)
  Receive Date: 20110502
  Receipt Date: 20160510
  Transmission Date: 20160815
  Serious: Yes (Other)
  Sender: FDA-Public Use
  Company Number: LB-SANOFI-AVENTIS-2011SA022740

PATIENT
  Age: 47 Year
  Sex: Male

DRUGS (12)
  1. FU [Suspect]
     Active Substance: FLUOROURACIL
     Route: 048
  2. APO-RANITIDINE [Concomitant]
     Active Substance: RANITIDINE
     Indication: ANTIALLERGIC THERAPY
     Route: 042
     Dates: start: 20110203
  3. DOMPERIDONE [Concomitant]
     Active Substance: DOMPERIDONE
     Indication: ANTIEMETIC SUPPORTIVE CARE
     Route: 042
     Dates: start: 20110203
  4. FU [Suspect]
     Active Substance: FLUOROURACIL
     Dosage: BOLUS
  5. ELOXATIN [Suspect]
     Active Substance: OXALIPLATIN
     Indication: COLON CANCER
     Route: 042
  6. XELODA [Suspect]
     Active Substance: CAPECITABINE
     Route: 048
     Dates: start: 20110707, end: 20110720
  7. LEUCOVORIN. [Suspect]
     Active Substance: LEUCOVORIN
     Route: 065
  8. FU [Suspect]
     Active Substance: FLUOROURACIL
     Dosage: CONTINOUS INFUSION
  9. XELODA [Suspect]
     Active Substance: CAPECITABINE
     Route: 048
     Dates: start: 20110203
  10. ELOXATIN [Suspect]
     Active Substance: OXALIPLATIN
     Indication: COLON CANCER
     Route: 065
     Dates: start: 20110707, end: 20110707
  11. ELOXATIN [Suspect]
     Active Substance: OXALIPLATIN
     Indication: COLON CANCER
     Route: 042
     Dates: start: 20110203, end: 20110203
  12. GRANISETRON [Concomitant]
     Active Substance: GRANISETRON
     Indication: ANTIEMETIC SUPPORTIVE CARE
     Route: 042
     Dates: start: 20110203

REACTIONS (1)
  - Angina pectoris [Recovered/Resolved]

NARRATIVE: CASE EVENT DATE: 20110406
